FAERS Safety Report 25968133 (Version 1)
Quarter: 2025Q4

REPORT INFORMATION
  Report Type: Spontaneous
  Country: US (occurrence: US)
  Receive Date: 20251028
  Receipt Date: 20251028
  Transmission Date: 20260118
  Serious: No
  Sender: AMNEAL
  Company Number: US-AMNEAL PHARMACEUTICALS-2025-AMRX-03102

PATIENT
  Sex: Male
  Weight: 95.238 kg

DRUGS (1)
  1. BEXAROTENE [Suspect]
     Active Substance: BEXAROTENE
     Indication: Product used for unknown indication
     Dosage: 75 MILLIGRAM
     Route: 048
     Dates: start: 2024

REACTIONS (1)
  - Haemoglobin decreased [Not Recovered/Not Resolved]
